FAERS Safety Report 26028277 (Version 2)
Quarter: 2025Q4

REPORT INFORMATION
  Report Type: Spontaneous
  Country: US (occurrence: US)
  Receive Date: 20251111
  Receipt Date: 20251125
  Transmission Date: 20260119
  Serious: Yes (Other)
  Sender: OTSUKA
  Company Number: US-MMM-Otsuka-HAKG612M

PATIENT
  Age: 22 Year
  Sex: Male

DRUGS (3)
  1. ABILIFY ASIMTUFII [Suspect]
     Active Substance: ARIPIPRAZOLE
     Indication: Agitation
     Dosage: 720-960 MG
     Route: 065
  2. ABILIFY ASIMTUFII [Suspect]
     Active Substance: ARIPIPRAZOLE
     Indication: Autism spectrum disorder
  3. ABILIFY ASIMTUFII [Suspect]
     Active Substance: ARIPIPRAZOLE
     Indication: Injury

REACTIONS (3)
  - Suicidal ideation [Unknown]
  - Product dose omission issue [Unknown]
  - Drug effective for unapproved indication [Unknown]
